FAERS Safety Report 6340465-1 (Version None)
Quarter: 2009Q3

REPORT INFORMATION
  Report Type: 
  Country: None (occurrence: None)
  Receive Date: 20090904
  Receipt Date: 20070928
  Transmission Date: 20100115
  Serious: Yes (Other)
  Sender: FDA-Public Use
  Company Number: US-ASTRAZENECA-2007UW15839

PATIENT
  Age: 594 Month
  Sex: Male
  Weight: 80.7 kg

DRUGS (15)
  1. SEROQUEL [Suspect]
     Indication: DEPRESSION
     Route: 048
     Dates: start: 20040101, end: 20050101
  2. SEROQUEL [Suspect]
     Indication: SLEEP DISORDER
     Route: 048
     Dates: start: 20040101, end: 20050101
  3. SEROQUEL [Suspect]
     Dosage: STRENGTH 25MG, 100MG, 300MG, 450MG.  DOSE- 25-400MG
     Route: 048
     Dates: start: 20050713
  4. SEROQUEL [Suspect]
     Dosage: STRENGTH 25MG, 100MG, 300MG, 450MG.  DOSE- 25-400MG
     Route: 048
     Dates: start: 20050713
  5. TRAZODONE HCL [Concomitant]
     Indication: SLEEP DISORDER
     Dates: start: 20051128
  6. TRAZODONE HCL [Concomitant]
     Route: 048
     Dates: start: 20060101
  7. NAPROXEN [Concomitant]
     Dates: start: 20050713
  8. LODINE [Concomitant]
     Indication: PAIN
     Dosage: TAKE ONE TAB UP TO BID PRIN
     Route: 048
     Dates: start: 20050513
  9. FERROUS SULFATE TAB [Concomitant]
     Dosage: STRENGTH- 325(65) MG  DOSE-TBD
     Dates: start: 20050513
  10. CELEXA [Concomitant]
     Dosage: STRENGTH 40MG, 60MG  DOSE 40MG-60MG
     Route: 048
     Dates: start: 20050513
  11. METOCLORAMIDE HCL [Concomitant]
     Dosage: STRENGTH 10MG  DOSE10MG-50MG
     Route: 048
     Dates: start: 20050713
  12. VIAGRA [Concomitant]
     Dates: start: 20051128
  13. CYCLOBENZAPRIN HCL [Concomitant]
     Route: 048
     Dates: start: 20050804
  14. BACLOFEN [Concomitant]
     Route: 048
     Dates: start: 20050713
  15. MELOXICAM [Concomitant]
     Dosage: DOSE- 7.5MG TD
     Dates: start: 20051128

REACTIONS (5)
  - BLOOD CHOLESTEROL INCREASED [None]
  - DIABETIC NEUROPATHY [None]
  - GLUCOSE TOLERANCE IMPAIRED [None]
  - HYPERGLYCAEMIA [None]
  - TYPE 2 DIABETES MELLITUS [None]
